FAERS Safety Report 10173901 (Version 4)
Quarter: 2014Q3

REPORT INFORMATION
  Report Type: Spontaneous
  Country: US (occurrence: US)
  Receive Date: 20140515
  Receipt Date: 20140930
  Transmission Date: 20150326
  Serious: No
  Sender: FDA-Public Use
  Company Number: US-B.I. PHARMACEUTICALS,INC./RIDGEFIELD-2014-BI-20378BP

PATIENT
  Sex: Female
  Weight: 45 kg

DRUGS (17)
  1. SPIRIVA [Suspect]
     Active Substance: TIOTROPIUM BROMIDE MONOHYDRATE
     Indication: CHRONIC OBSTRUCTIVE PULMONARY DISEASE
     Dosage: 18 MCG
     Route: 055
     Dates: start: 2007
  2. NEBULIZER [Concomitant]
     Active Substance: UNSPECIFIED INGREDIENT
     Indication: CHRONIC OBSTRUCTIVE PULMONARY DISEASE
     Route: 055
  3. PULMICORT TURBUHALER [Concomitant]
     Active Substance: BUDESONIDE
     Indication: CHRONIC OBSTRUCTIVE PULMONARY DISEASE
     Route: 055
     Dates: start: 2013
  4. AMBIEN [Concomitant]
     Active Substance: ZOLPIDEM TARTRATE
     Indication: INSOMNIA
     Dosage: 10 MG
     Route: 048
     Dates: start: 2012
  5. ATROVENT [Suspect]
     Active Substance: IPRATROPIUM BROMIDE
     Indication: CHRONIC OBSTRUCTIVE PULMONARY DISEASE
     Route: 055
     Dates: start: 201403
  6. NORVASC [Concomitant]
     Active Substance: AMLODIPINE BESYLATE
     Indication: HYPERTENSION
     Dosage: 10 MG
     Route: 048
     Dates: start: 2009
  7. VITAMIN B12 [Concomitant]
     Active Substance: CYANOCOBALAMIN
     Indication: SUPPLEMENTATION THERAPY
     Dosage: FORM: INTRAMASCULAR
     Route: 030
     Dates: start: 201402
  8. TOPROL XL [Concomitant]
     Active Substance: METOPROLOL SUCCINATE
     Indication: CARDIAC DISORDER
  9. PREVACID [Concomitant]
     Active Substance: LANSOPRAZOLE
     Indication: GASTROOESOPHAGEAL REFLUX DISEASE
     Dosage: 30 MG
     Route: 048
     Dates: start: 2013
  10. LIPITOR [Concomitant]
     Active Substance: ATORVASTATIN CALCIUM
     Indication: BLOOD CHOLESTEROL INCREASED
     Dosage: 40 MG
     Route: 048
     Dates: start: 2011
  11. ZOLOFT [Concomitant]
     Active Substance: SERTRALINE HYDROCHLORIDE
     Indication: DEPRESSION
     Dosage: 100 MG
     Route: 048
     Dates: start: 2011
  12. HYDRALAZINE [Concomitant]
     Active Substance: HYDRALAZINE HYDROCHLORIDE
     Indication: CARDIAC DISORDER
     Dosage: 1000 MG
     Route: 048
     Dates: start: 2012
  13. XOPENEX [Concomitant]
     Active Substance: LEVALBUTEROL HYDROCHLORIDE
     Indication: CHRONIC OBSTRUCTIVE PULMONARY DISEASE
     Dosage: STRENGTH: 0.63 MG/3ML AND DAILY DOS:1.89
     Route: 055
  14. SINGULAIR [Concomitant]
     Active Substance: MONTELUKAST SODIUM
     Indication: CHRONIC OBSTRUCTIVE PULMONARY DISEASE
     Dosage: 100 MG
     Route: 048
  15. PERFORMIST [Concomitant]
     Indication: CHRONIC OBSTRUCTIVE PULMONARY DISEASE
     Route: 055
  16. TOPROL XL [Concomitant]
     Active Substance: METOPROLOL SUCCINATE
     Indication: HYPERTENSION
     Dosage: 100 MG
     Route: 048
     Dates: start: 2009
  17. XOPENEX [Concomitant]
     Active Substance: LEVALBUTEROL HYDROCHLORIDE
     Route: 055
     Dates: start: 2013

REACTIONS (9)
  - Pulmonary congestion [Unknown]
  - Dysphonia [Unknown]
  - Oral candidiasis [Unknown]
  - Oropharyngeal pain [Unknown]
  - Pulmonary congestion [Unknown]
  - Product quality issue [Unknown]
  - Dyspnoea [Unknown]
  - Product quality issue [Unknown]
  - Abdominal discomfort [Unknown]

NARRATIVE: CASE EVENT DATE: 2013
